FAERS Safety Report 6720609-X (Version None)
Quarter: 2010Q2

REPORT INFORMATION
  Report Type: 
  Country: None (occurrence: None)
  Receive Date: 20100510
  Receipt Date: 20100423
  Transmission Date: 20101027
  Serious: Yes (Other)
  Sender: FDA-Public Use
  Company Number: 1000013573

PATIENT
  Age: 48 Year
  Sex: Female
  Weight: 48.9885 kg

DRUGS (14)
  1. SAVELLA [Suspect]
     Indication: CERVICOGENIC HEADACHE
     Dosage: 50 MG (50 MG, 1 IN 1 D), ORAL; 100 MG (100 MG, 1 IN 1 D), ORAL
     Route: 048
  2. SAVELLA [Suspect]
     Indication: PAIN IN EXTREMITY
     Dosage: 50 MG (50 MG, 1 IN 1 D), ORAL; 100 MG (100 MG, 1 IN 1 D), ORAL
     Route: 048
  3. LYRICA [Suspect]
     Indication: CERVICOGENIC HEADACHE
     Dosage: SEE IMAGE
     Route: 048
     Dates: start: 20061101, end: 20061129
  4. LYRICA [Suspect]
     Indication: MIGRAINE
     Dosage: SEE IMAGE
     Route: 048
     Dates: start: 20061101, end: 20061129
  5. LYRICA [Suspect]
     Indication: PAIN IN EXTREMITY
     Dosage: SEE IMAGE
     Route: 048
     Dates: start: 20061101, end: 20061129
  6. LYRICA [Suspect]
     Indication: CERVICOGENIC HEADACHE
     Dosage: SEE IMAGE
     Route: 048
     Dates: start: 20060601
  7. LYRICA [Suspect]
     Indication: MIGRAINE
     Dosage: SEE IMAGE
     Route: 048
     Dates: start: 20060601
  8. LYRICA [Suspect]
     Indication: PAIN IN EXTREMITY
     Dosage: SEE IMAGE
     Route: 048
     Dates: start: 20060601
  9. LYRICA [Suspect]
     Indication: CERVICOGENIC HEADACHE
     Dosage: SEE IMAGE
     Route: 048
     Dates: start: 20061130
  10. LYRICA [Suspect]
     Indication: MIGRAINE
     Dosage: SEE IMAGE
     Route: 048
     Dates: start: 20061130
  11. LYRICA [Suspect]
     Indication: PAIN IN EXTREMITY
     Dosage: SEE IMAGE
     Route: 048
     Dates: start: 20061130
  12. CLONAZEPAM [Concomitant]
  13. SYNTHROID [Concomitant]
  14. DOXEPIN HCL [Concomitant]

REACTIONS (3)
  - CONFUSIONAL STATE [None]
  - MYALGIA [None]
  - WEIGHT DECREASED [None]
